FAERS Safety Report 13352991 (Version 1)
Quarter: 2017Q1

REPORT INFORMATION
  Report Type: Spontaneous
  Country: US (occurrence: US)
  Receive Date: 20170321
  Receipt Date: 20170321
  Transmission Date: 20170429
  Serious: Yes (Hospitalization, Other)
  Sender: FDA-Public Use
  Company Number: US-AUROBINDO-AUR-APL-2017-30978

PATIENT
  Age: 70 Year
  Sex: Male

DRUGS (3)
  1. CITALOPRAM [Suspect]
     Active Substance: CITALOPRAM HYDROBROMIDE
     Indication: DEPRESSION
     Dosage: UNK
     Route: 065
  2. LINEZOLID. [Suspect]
     Active Substance: LINEZOLID
     Indication: PRODUCT USED FOR UNKNOWN INDICATION
     Dosage: 600 MG, TWO TIMES A DAY
     Route: 048
  3. COTRIMOXAZOLE [Suspect]
     Active Substance: SULFAMETHOXAZOLE\TRIMETHOPRIM
     Indication: STAPHYLOCOCCAL INFECTION
     Route: 048

REACTIONS (10)
  - Blood creatinine increased [Unknown]
  - Anxiety [Unknown]
  - Tremor [Unknown]
  - Acute kidney injury [Unknown]
  - Tachycardia [Unknown]
  - Hyperhidrosis [Unknown]
  - Serotonin syndrome [Unknown]
  - Disorientation [Unknown]
  - Feeling abnormal [Unknown]
  - Palpitations [Unknown]
